FAERS Safety Report 6385674-0 (Version None)
Quarter: 2009Q4

REPORT INFORMATION
  Report Type: 
  Country: None (occurrence: None)
  Receive Date: 20091002
  Receipt Date: 20081013
  Transmission Date: 20100525
  Serious: No
  Sender: FDA-Public Use
  Company Number: US-ASTRAZENECA-2008UW22527

PATIENT
  Age: 83 Year
  Sex: Female
  Weight: 86.2 kg

DRUGS (3)
  1. ARIMIDEX [Suspect]
     Indication: BREAST CANCER
     Route: 048
     Dates: start: 20070301
  2. COUMADIN [Concomitant]
  3. 30 VITAMINS [Concomitant]

REACTIONS (1)
  - MUSCULAR WEAKNESS [None]
